FAERS Safety Report 5879888-3 (Version None)
Quarter: 2008Q3

REPORT INFORMATION
  Report Type: 
  Country: None (occurrence: None)
  Receive Date: 20080911
  Receipt Date: 20080911
  Transmission Date: 20090109
  Serious: No
  Sender: FDA-Public Use
  Company Number: None

PATIENT
  Age: 65 Year
  Sex: Female

DRUGS (1)
  1. ACTONEL [Suspect]
     Dosage: 150 MG 1-MONTHLY
     Dates: start: 20080704

REACTIONS (5)
  - ODYNOPHAGIA [None]
  - OESOPHAGEAL OBSTRUCTION [None]
  - OESOPHAGEAL PAIN [None]
  - OROPHARYNGEAL PAIN [None]
  - RETCHING [None]
